FAERS Safety Report 23463126 (Version 1)
Quarter: 2024Q1

REPORT INFORMATION
  Report Type: Spontaneous
  Country: CA (occurrence: CA)
  Receive Date: 20240131
  Receipt Date: 20240131
  Transmission Date: 20240410
  Serious: Yes (Other)
  Sender: FDA-Public Use
  Company Number: CA-FreseniusKabi-FK202401734

PATIENT
  Age: 41 Year
  Sex: Female
  Weight: 113 kg

DRUGS (16)
  1. VANCOMYCIN [Suspect]
     Active Substance: VANCOMYCIN
     Indication: Staphylococcal infection
     Dosage: DOSAGE FORM: NOT SPECIFIED
     Route: 065
  2. VANCOMYCIN [Suspect]
     Active Substance: VANCOMYCIN
     Indication: Staphylococcal bacteraemia
  3. VANCOMYCIN [Suspect]
     Active Substance: VANCOMYCIN
     Indication: Septic embolus
  4. VANCOMYCIN [Suspect]
     Active Substance: VANCOMYCIN
     Indication: Pulmonary embolism
  5. VANCOMYCIN [Suspect]
     Active Substance: VANCOMYCIN
     Indication: Abscess
  6. CUBICIN [Suspect]
     Active Substance: DAPTOMYCIN
     Indication: Staphylococcal infection
     Dosage: FOA: POWDER FOR SOLUTION INTRAVENOUS
     Route: 042
  7. CUBICIN [Suspect]
     Active Substance: DAPTOMYCIN
     Indication: Staphylococcal bacteraemia
     Dosage: FOA: INJECTION
  8. CUBICIN [Suspect]
     Active Substance: DAPTOMYCIN
     Indication: Septic embolus
  9. CUBICIN [Suspect]
     Active Substance: DAPTOMYCIN
     Indication: Pulmonary embolism
  10. CUBICIN [Suspect]
     Active Substance: DAPTOMYCIN
     Indication: Abscess
  11. ACETAMINOPHEN [Concomitant]
     Active Substance: ACETAMINOPHEN
     Indication: Product used for unknown indication
     Dosage: FOA: NOT SPECIFIED
     Route: 065
  12. CEFTRIAXONE [Concomitant]
     Active Substance: CEFTRIAXONE\CEFTRIAXONE SODIUM
     Indication: Product used for unknown indication
     Route: 065
  13. FRAGMIN [Concomitant]
     Active Substance: DALTEPARIN SODIUM
     Indication: Product used for unknown indication
     Dosage: FOA: SOLUTION INTRAVENOUS
     Route: 065
  14. GLICLAZIDE [Concomitant]
     Active Substance: GLICLAZIDE
     Indication: Product used for unknown indication
     Dosage: FOA: TABLETS
     Route: 065
  15. METFORMIN [Concomitant]
     Active Substance: METFORMIN HYDROCHLORIDE
     Indication: Product used for unknown indication
     Dosage: FOA: TABLET
     Route: 065
  16. MORPHINE [Concomitant]
     Active Substance: MORPHINE
     Indication: Product used for unknown indication
     Dosage: FOA: NOT SPECIFIED
     Route: 065

REACTIONS (3)
  - Blood creatine phosphokinase increased [Unknown]
  - Muscular weakness [Unknown]
  - Pain [Unknown]
